FAERS Safety Report 12261285 (Version 1)
Quarter: 2016Q2

REPORT INFORMATION
  Report Type: Spontaneous
  Country: US (occurrence: US)
  Receive Date: 20160412
  Receipt Date: 20160412
  Transmission Date: 20160815
  Serious: Yes (Death)
  Sender: FDA-Public Use
  Company Number: US-PFIZER INC-2016185555

PATIENT

DRUGS (1)
  1. CHAPSTICK MEDICATED [Suspect]
     Active Substance: CAMPHOR (SYNTHETIC)\MENTHOL\PETROLATUM\PHENOL
     Indication: SKIN FISSURES
     Dosage: UNK

REACTIONS (2)
  - Death [Fatal]
  - Intentional product misuse [Unknown]
